FAERS Safety Report 8619382-X (Version None)
Quarter: 2012Q3

REPORT INFORMATION
  Report Type: 
  Country: None (occurrence: None)
  Receive Date: 20120824
  Receipt Date: 20120815
  Transmission Date: 20120928
  Serious: Yes (Disabling, Other)
  Sender: FDA-Public Use
  Company Number: US-009507513-1206USA04705

PATIENT

DRUGS (3)
  1. FOSAMAX [Suspect]
     Indication: OSTEOPENIA
  2. LEVOXYL [Concomitant]
     Indication: THYROID DISORDER
     Dosage: 5 MG, QD
  3. FOSAMAX [Suspect]
     Indication: OSTEOPOROSIS
     Dosage: UNK
     Route: 048
     Dates: start: 20000808, end: 20091001

REACTIONS (7)
  - SPINAL FRACTURE [None]
  - WRIST FRACTURE [None]
  - LOW TURNOVER OSTEOPATHY [None]
  - STRESS FRACTURE [None]
  - FEMUR FRACTURE [None]
  - OSTEOPOROSIS [None]
  - ORTHOPEDIC PROCEDURE [None]
